FAERS Safety Report 7130722-3 (Version None)
Quarter: 2010Q4

REPORT INFORMATION
  Report Type: 
  Country: None (occurrence: None)
  Receive Date: 20101101
  Receipt Date: 20100720
  Transmission Date: 20110411
  Serious: No
  Sender: FDA-Public Use
  Company Number: 2010-09718

PATIENT
  Age: 65 Year
  Sex: Male

DRUGS (2)
  1. RAPAFLO [Suspect]
     Indication: PROSTATOMEGALY
     Dosage: 8MG DAILY WITH DINNER, ORAL
     Route: 048
     Dates: start: 20100710
  2. BENICAR HCT (HYDROCHLOROTHIAZIDE, OLMESARTON, MEDOXOMIL) [Concomitant]

REACTIONS (1)
  - DIZZINESS [None]
